FAERS Safety Report 22155681 (Version 1)
Quarter: 2023Q1

REPORT INFORMATION
  Report Type: Spontaneous
  Country: US (occurrence: US)
  Receive Date: 20230330
  Receipt Date: 20230330
  Transmission Date: 20230418
  Serious: Yes (Death, Hospitalization, Other)
  Sender: FDA-Public Use
  Company Number: US-SUN PHARMACEUTICAL INDUSTRIES LTD-2023R1-382802

PATIENT
  Age: 79 Year
  Sex: Female

DRUGS (1)
  1. CHLORTHALIDONE [Suspect]
     Active Substance: CHLORTHALIDONE
     Indication: Hypertension
     Dosage: UNK
     Route: 065

REACTIONS (4)
  - SJS-TEN overlap [Fatal]
  - Acute kidney injury [Unknown]
  - Decubitus ulcer [Unknown]
  - Hypotension [Unknown]
